FAERS Safety Report 21837809 (Version 1)
Quarter: 2023Q1

REPORT INFORMATION
  Report Type: Spontaneous
  Country: US (occurrence: US)
  Receive Date: 20230109
  Receipt Date: 20230109
  Transmission Date: 20230418
  Serious: Yes (Other)
  Sender: FDA-Public Use
  Company Number: US-PFIZER INC-PV202300002380

PATIENT
  Age: 31 Year
  Sex: Female

DRUGS (3)
  1. HYDROCORTISONE SODIUM SUCCINATE [Suspect]
     Active Substance: HYDROCORTISONE SODIUM SUCCINATE
     Dosage: 100 MG
     Route: 042
  2. EPINEPHRINE [Suspect]
     Active Substance: EPINEPHRINE
     Dosage: 0.3 MG
     Route: 030
  3. DIPHENHYDRAMINE [Suspect]
     Active Substance: DIPHENHYDRAMINE
     Dosage: 50 MG
     Route: 042

REACTIONS (7)
  - Depressed level of consciousness [Recovered/Resolved]
  - Burning sensation [Recovered/Resolved]
  - Erythema [Recovered/Resolved]
  - Tenderness [Recovered/Resolved]
  - Urticaria [Recovered/Resolved]
  - Tenderness [Recovered/Resolved]
  - Back pain [Recovered/Resolved]
